FAERS Safety Report 8185695-1 (Version None)
Quarter: 2012Q1

REPORT INFORMATION
  Report Type: 
  Country: None (occurrence: None)
  Receive Date: 20120305
  Receipt Date: 20120228
  Transmission Date: 20120608
  Serious: Yes (Death, Other)
  Sender: FDA-Public Use
  Company Number: US-CELGENEUS-163-20785-10082761

PATIENT

DRUGS (6)
  1. PACLITAXEL [Suspect]
     Dosage: 45 MILLIGRAM/SQ. METER
     Route: 065
  2. ASPIRIN [Concomitant]
     Route: 065
  3. THALOMID [Suspect]
     Dosage: 200-1000 MG
     Route: 048
  4. CARBOPLATIN [Suspect]
     Dosage: AUC=2
     Route: 065
  5. CARBOPLATIN [Suspect]
     Dosage: AUC=6
     Route: 065
  6. PACLITAXEL [Suspect]
     Dosage: 225 MILLIGRAM/SQ. METER
     Route: 065

REACTIONS (33)
  - NEUTROPENIC INFECTION [None]
  - ILEUS [None]
  - GASTROINTESTINAL HAEMORRHAGE [None]
  - HYPERTENSION [None]
  - ANAEMIA [None]
  - CONSTIPATION [None]
  - MYOCARDIAL ISCHAEMIA [None]
  - EMBOLISM [None]
  - SEDATION [None]
  - FEBRILE NEUTROPENIA [None]
  - TREMOR [None]
  - DEPRESSED LEVEL OF CONSCIOUSNESS [None]
  - HYPERSENSITIVITY [None]
  - HYPOKALAEMIA [None]
  - WEIGHT DECREASED [None]
  - NEUTROPENIA [None]
  - PERIPHERAL MOTOR NEUROPATHY [None]
  - HYPOXIA [None]
  - FATIGUE [None]
  - DIZZINESS [None]
  - EXFOLIATIVE RASH [None]
  - OEDEMA [None]
  - VOMITING [None]
  - PNEUMONITIS [None]
  - BONE MARROW FAILURE [None]
  - RADIATION SKIN INJURY [None]
  - RADIATION DYSPHAGIA [None]
  - PERIPHERAL SENSORY NEUROPATHY [None]
  - THROMBOCYTOPENIA [None]
  - DECREASED APPETITE [None]
  - HYPOTENSION [None]
  - LEUKOPENIA [None]
  - DYSPNOEA [None]
